FAERS Safety Report 18465378 (Version 3)
Quarter: 2021Q1

REPORT INFORMATION
  Report Type: Spontaneous
  Country: PT (occurrence: PT)
  Receive Date: 20201104
  Receipt Date: 20210128
  Transmission Date: 20210419
  Serious: Yes (Death, Hospitalization, Other)
  Sender: FDA-Public Use
  Company Number: PT-BAXTER-2020BAX021795

PATIENT
  Age: 40 Year
  Sex: Male

DRUGS (5)
  1. PROCARBAZINE [Suspect]
     Active Substance: PROCARBAZINE
     Indication: B-CELL LYMPHOMA
     Dosage: UNK, COMPLETED 7 DAYS OF THERAPY
     Route: 065
  2. ENDOXAN PO PARA SOLUCAO INJECTAVEL 500 MG [Suspect]
     Active Substance: CYCLOPHOSPHAMIDE
     Indication: B-CELL LYMPHOMA
     Dosage: UNK, COMPLETED 7 DAYS OF THERAPY
     Route: 065
  3. PREDNISOLONE. [Suspect]
     Active Substance: PREDNISOLONE
     Indication: B-CELL LYMPHOMA
     Dosage: UNK, COMPLETED 7 DAYS OF THERAPY
     Route: 065
  4. ETOPOSIDE. [Suspect]
     Active Substance: ETOPOSIDE
     Indication: B-CELL LYMPHOMA
     Dosage: UNK, COMPLETED 7 DAYS OF THERAPY
     Route: 065
  5. RITUXIMAB. [Suspect]
     Active Substance: RITUXIMAB
     Indication: B-CELL LYMPHOMA
     Dosage: UNK, COMPLETED 7 DAYS OF THERAPY
     Route: 065

REACTIONS (8)
  - Condition aggravated [Fatal]
  - Brain oedema [Fatal]
  - Haematotoxicity [Fatal]
  - Hemiplegia [Unknown]
  - Cerebral haematoma [Fatal]
  - Death [Fatal]
  - Seizure [Not Recovered/Not Resolved]
  - Off label use [Unknown]
